FAERS Safety Report 9296323 (Version 1)
Quarter: 2013Q2

REPORT INFORMATION
  Report Type: Spontaneous
  Country: FR (occurrence: FR)
  Receive Date: 20130517
  Receipt Date: 20130517
  Transmission Date: 20140414
  Serious: Yes (Hospitalization)
  Sender: FDA-Public Use
  Company Number: FR-BAYER-2013-061126

PATIENT
  Age: 49 Year
  Sex: Male

DRUGS (9)
  1. XARELTO [Suspect]
     Indication: PULMONARY EMBOLISM
     Dosage: 15 MG, BID
     Route: 048
     Dates: start: 20130305, end: 20130315
  2. KETOPROFEN (SYSTEMIC FORMULATION) [Suspect]
     Indication: LUNG INFECTION
     Dosage: 100 MG, QD
     Route: 048
     Dates: start: 20130305, end: 20130312
  3. AMOXICILLINE + CLAVULANIC ACID [Suspect]
     Indication: LUNG INFECTION
     Dosage: 1G /125MG
     Route: 048
     Dates: start: 20130305, end: 20130312
  4. ESOMEPRAZOLE [Suspect]
     Indication: LUNG INFECTION
     Dosage: 20 MG, QD
     Route: 048
     Dates: start: 20130305, end: 20130312
  5. PARACETAMOL [Suspect]
     Dosage: UNK
     Route: 048
     Dates: start: 20130305
  6. AMLODIPINE [Suspect]
     Dosage: 10 MG, QD
     Route: 048
     Dates: start: 20130306
  7. LOVENOX [Suspect]
     Dosage: DAILY DOSE 8000 IU
     Dates: start: 20130315
  8. JOSACINE [Concomitant]
     Dosage: UNK
     Dates: start: 20130313
  9. INNOHEP [Concomitant]
     Dosage: UNK

REACTIONS (3)
  - Haemothorax [Recovering/Resolving]
  - Pleural effusion [Recovering/Resolving]
  - Chest pain [Recovered/Resolved]
